FAERS Safety Report 24725716 (Version 2)
Quarter: 2025Q3

REPORT INFORMATION
  Report Type: Report from Study
  Country: KR (occurrence: KR)
  Receive Date: 20241212
  Receipt Date: 20250729
  Transmission Date: 20251020
  Serious: Yes (Hospitalization)
  Sender: SUNOVION
  Company Number: KR-BIAL-BIAL-17616

PATIENT

DRUGS (19)
  1. ESLICARBAZEPINE ACETATE [Suspect]
     Active Substance: ESLICARBAZEPINE ACETATE
     Indication: Epilepsy
     Dosage: 300 MILLIGRAM, QD
     Route: 048
     Dates: start: 20240226, end: 20240315
  2. ESLICARBAZEPINE ACETATE [Suspect]
     Active Substance: ESLICARBAZEPINE ACETATE
     Dosage: 400 MILLIGRAM, QD
     Route: 048
     Dates: start: 20240316, end: 20240326
  3. ESLICARBAZEPINE ACETATE [Suspect]
     Active Substance: ESLICARBAZEPINE ACETATE
     Dosage: 500 MILLIGRAM, QD
     Route: 048
     Dates: start: 20240327, end: 20240407
  4. ESLICARBAZEPINE ACETATE [Suspect]
     Active Substance: ESLICARBAZEPINE ACETATE
     Dosage: 600 MILLIGRAM, QD
     Route: 048
     Dates: start: 20240408
  5. DEPAKOTE [Concomitant]
     Active Substance: DIVALPROEX SODIUM
     Indication: Epilepsy
     Dosage: 1 DOSAGE FORM, QD
     Route: 048
     Dates: start: 20240227, end: 20240315
  6. DEPAKOTE [Concomitant]
     Active Substance: DIVALPROEX SODIUM
     Indication: Epilepsy
     Dosage: 2 DOSAGE FORM, QD
     Route: 048
     Dates: start: 20240227, end: 20240315
  7. DEPAKOTE [Concomitant]
     Active Substance: DIVALPROEX SODIUM
     Indication: Epilepsy
     Dosage: 2 DOSAGE FORM, BID
     Route: 048
     Dates: start: 20240225, end: 20240226
  8. MELATONIN [Concomitant]
     Active Substance: MELATONIN
     Indication: Induction of anaesthesia
     Dosage: 5 DOSAGE FORM, QD
     Route: 048
     Dates: start: 20240226, end: 20240226
  9. L-carn [Concomitant]
     Indication: Prophylaxis
     Dosage: 1.5 MILLILITER, BID
     Route: 048
     Dates: start: 20240226, end: 20240315
  10. L-carn [Concomitant]
     Indication: Prophylaxis
     Dosage: 1 MILLILITER, BID
     Route: 048
     Dates: start: 20240316, end: 20240326
  11. DEPAKOTE [Concomitant]
     Active Substance: DIVALPROEX SODIUM
     Indication: Epilepsy
     Dosage: 1 DOSAGE FORM, BID
     Route: 048
     Dates: start: 20240316, end: 20240326
  12. DEPAKOTE [Concomitant]
     Active Substance: DIVALPROEX SODIUM
     Indication: Epilepsy
     Dosage: 1 DOSAGE FORM, QD
     Route: 048
     Dates: start: 20240327, end: 20240408
  13. FYCOMPA [Concomitant]
     Active Substance: PERAMPANEL
     Indication: Epilepsy
     Dosage: 1 DOSAGE FORM, QD
     Route: 048
     Dates: start: 20240504, end: 20240702
  14. RAMNOS [Concomitant]
     Indication: Prophylaxis
     Dosage: 1 DOSAGE FORM, BID
     Route: 048
     Dates: start: 20240615
  15. FYCOMPA [Concomitant]
     Active Substance: PERAMPANEL
     Indication: Epilepsy
     Dosage: 1 DOSAGE FORM, QD
     Route: 048
     Dates: start: 20240703, end: 20240906
  16. FYCOMPA [Concomitant]
     Active Substance: PERAMPANEL
     Indication: Epilepsy
     Dosage: 1 DOSAGE FORM, QD
     Route: 048
     Dates: start: 20240907
  17. XYZAL [Concomitant]
     Active Substance: LEVOCETIRIZINE DIHYDROCHLORIDE
     Indication: Prophylaxis
     Dosage: 5 MILLILITER, BID
     Route: 048
     Dates: start: 20240802
  18. L-CARN [Concomitant]
     Indication: Prophylaxis
     Dosage: 1 MILLILITER, QD
     Route: 048
     Dates: start: 20240327, end: 20240411
  19. L-CARN [Concomitant]
     Indication: Prophylaxis
     Dosage: 1.5 MILLILITER, QD
     Route: 048
     Dates: start: 20240628

REACTIONS (4)
  - Epilepsy [Recovered/Resolved]
  - Vomiting [Recovered/Resolved]
  - Underdose [Unknown]
  - Drug titration error [Unknown]

NARRATIVE: CASE EVENT DATE: 20240408
